FAERS Safety Report 5821413-7 (Version None)
Quarter: 2008Q3

REPORT INFORMATION
  Report Type: 
  Country: None (occurrence: None)
  Receive Date: 20080724
  Receipt Date: 20080722
  Transmission Date: 20090109
  Serious: Yes (Hospitalization)
  Sender: FDA-Public Use
  Company Number: US-BRISTOL-MYERS SQUIBB COMPANY-12976320

PATIENT
  Age: 59 Year
  Sex: Male
  Weight: 93 kg

DRUGS (8)
  1. PRAVACHOL [Suspect]
     Indication: BLOOD CHOLESTEROL INCREASED
     Route: 048
     Dates: start: 20041124, end: 20050301
  2. FLEXERIL [Concomitant]
  3. IBUPROFEN TABLETS [Concomitant]
  4. VITAMIN TAB [Concomitant]
  5. TRICOR [Concomitant]
  6. LISINOPRIL [Concomitant]
  7. HYDROCHLOROTHIAZIDE [Concomitant]
  8. NORCO [Concomitant]
     Dosage: DOSAGE FORM = 10 MG/325MG

REACTIONS (8)
  - GINGIVAL DISORDER [None]
  - INTERVERTEBRAL DISC PROTRUSION [None]
  - MULTIPLE FRACTURES [None]
  - MUSCLE STRAIN [None]
  - MUSCULOSKELETAL PAIN [None]
  - PAIN IN EXTREMITY [None]
  - RENAL PAIN [None]
  - URINARY TRACT DISORDER [None]
